FAERS Safety Report 6891865-2 (Version None)
Quarter: 2010Q3

REPORT INFORMATION
  Report Type: 
  Country: None (occurrence: None)
  Receive Date: 20100731
  Receipt Date: 20071127
  Transmission Date: 20110219
  Serious: Yes (Other)
  Sender: FDA-Public Use
  Company Number: US-PFIZER INC-2007075457

PATIENT
  Sex: Male
  Weight: 97.7 kg

DRUGS (3)
  1. NEURONTIN [Suspect]
     Indication: PAIN
     Dates: start: 20050101, end: 20060907
  2. GLUCOPHAGE [Concomitant]
     Indication: TYPE 2 DIABETES MELLITUS
  3. GLYBURIDE [Concomitant]
     Indication: TYPE 2 DIABETES MELLITUS

REACTIONS (2)
  - CATARACT OPERATION [None]
  - DRUG INEFFECTIVE [None]
